FAERS Safety Report 4568905-9 (Version None)
Quarter: 2005Q1

REPORT INFORMATION
  Report Type: 
  Country: None (occurrence: None)
  Receive Date: 20050203
  Receipt Date: 20050124
  Transmission Date: 20050727
  Serious: Yes (Hospitalization)
  Sender: FDA-Public Use
  Company Number: US-JNJFOC-20041106400

PATIENT
  Sex: Female
  Weight: 115.21 kg

DRUGS (1)
  1. REMICADE [Suspect]
     Indication: CROHN'S DISEASE
     Dosage: PATIENT HAS BEEN ON INFLIXIMAB FOR 6-8 MONTHS.
     Route: 042

REACTIONS (1)
  - AORTIC STENOSIS [None]
